FAERS Safety Report 17682747 (Version 1)
Quarter: 2020Q2

REPORT INFORMATION
  Report Type: Spontaneous
  Country: US (occurrence: US)
  Receive Date: 20200419
  Receipt Date: 20200419
  Transmission Date: 20200714
  Serious: Yes (Life-Threatening, Hospitalization, Other)
  Sender: FDA-Public Use
  Company Number: US-AUROBINDO-AUR-APL-2020-018195

PATIENT
  Age: 76 Year
  Sex: Male

DRUGS (5)
  1. DEXAMETHASONE. [Suspect]
     Active Substance: DEXAMETHASONE
     Indication: METASTASES TO BONE
     Dosage: 2 MILLIGRAM, ONCE A DAY
     Route: 065
  2. DEXAMETHASONE. [Suspect]
     Active Substance: DEXAMETHASONE
     Indication: METASTASES TO CENTRAL NERVOUS SYSTEM
     Dosage: 4 MILLIGRAM, TWO TIMES A DAY ((}50 MG PREDNISONE EQUIVALENT/DAY)
     Route: 065
  3. LEUPRORELIN [Suspect]
     Active Substance: LEUPROLIDE ACETATE
     Indication: PROSTATE CANCER METASTATIC
     Dosage: UNK
     Route: 065
  4. DEXAMETHASONE. [Suspect]
     Active Substance: DEXAMETHASONE
     Indication: PROSTATE CANCER
     Dosage: 8 MILLIGRAM, TWO TIMES A DAY
     Route: 065
  5. BICALUTAMIDE. [Suspect]
     Active Substance: BICALUTAMIDE
     Indication: PROSTATE CANCER METASTATIC
     Dosage: UNK
     Route: 065

REACTIONS (3)
  - Pulmonary embolism [Recovering/Resolving]
  - Pneumocystis jirovecii pneumonia [Recovering/Resolving]
  - Respiratory failure [Recovering/Resolving]
